FAERS Safety Report 5620295-6 (Version None)
Quarter: 2008Q1

REPORT INFORMATION
  Report Type: 
  Country: None (occurrence: None)
  Receive Date: 20080208
  Receipt Date: 20080129
  Transmission Date: 20080703
  Serious: No
  Sender: FDA-Public Use
  Company Number: US-BAXTER-2008BH000429

PATIENT
  Age: 70 Year
  Sex: Female
  Weight: 71 kg

DRUGS (3)
  1. HEPARIN SODIUM [Suspect]
     Indication: THROMBOSIS PROPHYLAXIS
     Route: 040
     Dates: start: 20080110, end: 20080110
  2. HEPARIN SODIUM [Suspect]
     Route: 040
     Dates: start: 20080110, end: 20080110
  3. HEPARIN SODIUM [Suspect]
     Route: 042
     Dates: start: 20080110, end: 20080110

REACTIONS (2)
  - DIZZINESS [None]
  - NAUSEA [None]
